FAERS Safety Report 6554245-5 (Version None)
Quarter: 2010Q1

REPORT INFORMATION
  Report Type: 
  Country: None (occurrence: None)
  Receive Date: 20100127
  Receipt Date: 20100114
  Transmission Date: 20100710
  Serious: Yes (Death)
  Sender: FDA-Public Use
  Company Number: US-WATSON-2010-00615

PATIENT
  Age: 56 Year
  Sex: Female

DRUGS (1)
  1. DOBUTAMINE HCL [Suspect]
     Indication: STRESS ECHOCARDIOGRAM
     Dosage: 20 UG/KG, MIN

REACTIONS (1)
  - PHAEOCHROMOCYTOMA CRISIS [None]
